FAERS Safety Report 16739930 (Version 2)
Quarter: 2019Q3

REPORT INFORMATION
  Report Type: Report from Study
  Country: DE (occurrence: DE)
  Receive Date: 20190826
  Receipt Date: 20190930
  Transmission Date: 20191005
  Serious: Yes (Death, Hospitalization, Other)
  Sender: FDA-Public Use
  Company Number: DE-AUROBINDO-AUR-APL-2019-055540

PATIENT
  Sex: Male

DRUGS (7)
  1. MABTHERA [Suspect]
     Active Substance: RITUXIMAB
     Indication: B-CELL LYMPHOMA
     Dosage: 790 MILLIGRAM (ONCE IN EVERY TWO WEEKS)
     Route: 042
     Dates: start: 20160923, end: 20161115
  2. DOXORUBICIN [Suspect]
     Active Substance: DOXORUBICIN
     Indication: B-CELL LYMPHOMA
     Dosage: 105 MILLIGRAM (ONCE IN EVERY TWO WEEKS)
     Route: 042
     Dates: start: 20161004, end: 20161115
  3. CYCLOPHOSPHAMIDE. [Suspect]
     Active Substance: CYCLOPHOSPHAMIDE
     Indication: B-CELL LYMPHOMA
     Dosage: 1580 MILLIGRAM (ONCE IN EVERY TWO WEEKS)
     Route: 042
     Dates: start: 20161004, end: 20161115
  4. RAMILICH [Concomitant]
     Active Substance: RAMIPRIL
     Indication: HYPERTENSION
     Dosage: 0.5 MILLIGRAM, TWO TIMES A DAY
     Route: 048
     Dates: end: 2016
  5. VINCRISTINE SULFATE LIPOSOME INJECTION [Suspect]
     Active Substance: VINCRISTINE SULFATE
     Indication: B-CELL LYMPHOMA
     Dosage: 4.12 MILLIGRAM (ONCE IN EVERY TWO WEEKS)
     Route: 042
     Dates: start: 20161006, end: 20161115
  6. PREDNISOLONE. [Suspect]
     Active Substance: PREDNISOLONE
     Indication: B-CELL LYMPHOMA
     Dosage: 100 MILLIGRAM (ONCE IN EVEY TWO WEEKS)
     Route: 048
     Dates: start: 20160923, end: 20161115
  7. LENOGRASTIM [Suspect]
     Active Substance: LENOGRASTIM
     Indication: B-CELL LYMPHOMA
     Dosage: 34 MICROGRAM (DAY 4-13)
     Route: 058
     Dates: start: 20161004, end: 20161127

REACTIONS (2)
  - Pneumocystis jirovecii pneumonia [Fatal]
  - Delirium [Fatal]

NARRATIVE: CASE EVENT DATE: 20161129
